FAERS Safety Report 5424381-5 (Version None)
Quarter: 2007Q3

REPORT INFORMATION
  Report Type: 
  Country: None (occurrence: None)
  Receive Date: 20070822
  Receipt Date: 20070809
  Transmission Date: 20080115
  Serious: Yes (Hospitalization)
  Sender: FDA-Public Use
  Company Number: 2007328818

PATIENT
  Age: 44 Year
  Sex: Male

DRUGS (6)
  1. NICORETTE [Suspect]
     Dosage: 1 DF DAILY, TRANSDERMAL
     Route: 062
     Dates: start: 20070516, end: 20070523
  2. METEOSPASYMAL (ALVERINE CITRATE, DL-METHIONINE) [Suspect]
     Dosage: 1 DOSE, ORAL
     Route: 048
     Dates: start: 20070523, end: 20070523
  3. OXAZEPAM [Concomitant]
  4. CODEINE PHOSPHATE HEMIHYDRATE (CODEINE PHOSPHATE HEMIHYDRATE) [Concomitant]
  5. POTASSIUM CHLORIDE [Concomitant]
  6. PANTOPRAZOLE SODIUM [Concomitant]

REACTIONS (5)
  - ANGIOEDEMA [None]
  - BLOOD PRESSURE DECREASED [None]
  - DYSPNOEA [None]
  - FLUSHING [None]
  - HEART RATE INCREASED [None]
